FAERS Safety Report 8439381 (Version 2)
Quarter: 2013Q2

REPORT INFORMATION
  Report Type: Spontaneous
  Country: US (occurrence: None)
  Receive Date: 20120104
  Receipt Date: 20120508
  Transmission Date: 20140414
  Serious: Yes (Other)
  Sender: FDA-Public Use
  Company Number: 2011HGS-002867

PATIENT
  Age: 29 Year
  Sex: Female
  Weight: 99.79 kg

DRUGS (9)
  1. BENLYSTA [Suspect]
     Indication: SYSTEMIC LUPUS ERYTHEMATOSUS
     Dosage: 1 IN 28 D, INTRAVENOUS DRIP
     Route: 041
     Dates: start: 20111109, end: 20111123
  2. PREDNISONE [Concomitant]
  3. PLAQUENIL [Concomitant]
  4. PROPRANOLOL [Concomitant]
  5. DIGOXIN (DIGOXIN) [Concomitant]
  6. SYNTHROID (LEVOTHYROXINE SODIUM) (LEVOTHYROXINE SODIUM) [Concomitant]
  7. GABAPENTIN (GABAPENTIN) [Concomitant]
  8. ALBUTEROL (SALBUTAMOL) [Concomitant]
  9. ZYRTEC [Concomitant]

REACTIONS (8)
  - CHEST DISCOMFORT [None]
  - BRONCHITIS [None]
  - CHILLS [None]
  - PRODUCTIVE COUGH [None]
  - WHEEZING [None]
  - NAUSEA [None]
  - DIARRHOEA [None]
  - URTICARIA [None]
